FAERS Safety Report 6447485-7 (Version None)
Quarter: 2009Q4

REPORT INFORMATION
  Report Type: 
  Country: None (occurrence: None)
  Receive Date: 20091119
  Receipt Date: 20090206
  Transmission Date: 20100525
  Serious: Yes (Other)
  Sender: FDA-Public Use
  Company Number: US-AMGEN-QUU328970

PATIENT
  Sex: Female
  Weight: 64 kg

DRUGS (4)
  1. ENBREL [Suspect]
     Indication: PSORIASIS
     Route: 058
     Dates: start: 19991201, end: 20080208
  2. ENBREL [Suspect]
     Indication: PSORIATIC ARTHROPATHY
  3. CYCLOSPORINE [Concomitant]
     Dates: start: 19970101
  4. METHOTREXATE [Concomitant]
     Dates: start: 19940101

REACTIONS (3)
  - METASTATIC MALIGNANT MELANOMA [None]
  - PSORIASIS [None]
  - PSORIATIC ARTHROPATHY [None]
